FAERS Safety Report 8021190-8 (Version None)
Quarter: 2012Q1

REPORT INFORMATION
  Report Type: 
  Country: None (occurrence: None)
  Receive Date: 20120104
  Receipt Date: 20111226
  Transmission Date: 20120608
  Serious: Yes (Other)
  Sender: FDA-Public Use
  Company Number: GB-BRISTOL-MYERS SQUIBB COMPANY-15953813

PATIENT
  Age: 34 Year
  Sex: Female

DRUGS (6)
  1. EFAVIRENZ [Suspect]
     Indication: ANTIRETROVIRAL THERAPY
     Dates: start: 20050801
  2. LAMIVUDINE [Interacting]
     Indication: ANTIRETROVIRAL THERAPY
     Dates: start: 20050801
  3. ZIDOVUDINE [Interacting]
     Indication: ANTIRETROVIRAL THERAPY
     Dates: start: 20050801
  4. EMTRICITABINE [Interacting]
     Indication: ANTIRETROVIRAL THERAPY
  5. IMPLANON [Interacting]
     Indication: CONTRACEPTION
     Dosage: 68MG
     Dates: start: 20051101
  6. TENOFOVIR [Interacting]
     Indication: ANTIRETROVIRAL THERAPY

REACTIONS (7)
  - METRORRHAGIA [None]
  - UNINTENDED PREGNANCY [None]
  - ECTOPIC PREGNANCY [None]
  - ABDOMINAL PAIN [None]
  - DRUG INTERACTION [None]
  - PREGNANCY WITH IMPLANT CONTRACEPTIVE [None]
  - INCORRECT DRUG ADMINISTRATION DURATION [None]
